FAERS Safety Report 6272352-1 (Version None)
Quarter: 2009Q3

REPORT INFORMATION
  Report Type: 
  Country: None (occurrence: None)
  Receive Date: 20090717
  Receipt Date: 20090707
  Transmission Date: 20100115
  Serious: Yes (Congenital Anomaly)
  Sender: FDA-Public Use
  Company Number: US-JNJFOC-20090406756

PATIENT
  Sex: Female

DRUGS (6)
  1. REMICADE [Suspect]
     Indication: DRUG EXPOSURE DURING PREGNANCY
     Dosage: DOSE REPORTED AS 100-600MG
  2. FLUVOXAMINE MALEATE [Concomitant]
  3. CELEBREX [Concomitant]
     Indication: RHEUMATOID ARTHRITIS
  4. MULTI-VITAMIN [Concomitant]
  5. CALCIUM [Concomitant]
  6. FOLIC ACID [Concomitant]

REACTIONS (1)
  - UMBILICAL CORD ABNORMALITY [None]
